FAERS Safety Report 24626387 (Version 1)
Quarter: 2024Q4

REPORT INFORMATION
  Report Type: Spontaneous
  Country: US (occurrence: US)
  Receive Date: 20241115
  Receipt Date: 20241115
  Transmission Date: 20250115
  Serious: Yes (Other)
  Sender: TAKEDA
  Company Number: US-TAKEDA-2024TUS112480

PATIENT
  Age: 38 Year
  Sex: Male

DRUGS (5)
  1. LIALDA [Suspect]
     Active Substance: MESALAMINE
     Indication: Colitis ulcerative
     Dosage: 1.6 GRAM
  2. LIALDA [Suspect]
     Active Substance: MESALAMINE
     Indication: Inflammatory bowel disease
  3. INFLECTRA [Suspect]
     Active Substance: INFLIXIMAB-DYYB
     Indication: Crohn^s disease
     Dosage: UNK, Q8WEEKS
  4. REMICADE [Suspect]
     Active Substance: INFLIXIMAB
     Indication: Crohn^s disease
     Dosage: UNK
  5. HUMIRA [Suspect]
     Active Substance: ADALIMUMAB
     Indication: Crohn^s disease
     Dosage: UNK

REACTIONS (9)
  - Colitis ulcerative [Unknown]
  - Insurance issue [Unknown]
  - Frustration tolerance decreased [Unknown]
  - Arthritis [Unknown]
  - Insomnia [Unknown]
  - Inappropriate schedule of product administration [Unknown]
  - Antibody test positive [Unknown]
  - Drug ineffective [Unknown]
  - Abdominal pain [Unknown]
